FAERS Safety Report 12959388 (Version 4)
Quarter: 2016Q4

REPORT INFORMATION
  Report Type: Spontaneous
  Country: IT (occurrence: IT)
  Receive Date: 20161121
  Receipt Date: 20161207
  Transmission Date: 20170207
  Serious: Yes (Hospitalization)
  Sender: FDA-Public Use
  Company Number: IT-TEVA-712078ACC

PATIENT
  Age: 72 Year
  Sex: Female

DRUGS (6)
  1. CAPECITABINA [Suspect]
     Active Substance: CAPECITABINE
     Indication: METAPLASTIC BREAST CARCINOMA
     Route: 048
     Dates: start: 20130709, end: 20160128
  2. CAPECITABINA [Suspect]
     Active Substance: CAPECITABINE
     Dates: start: 20160129, end: 20160501
  3. VINORELBINA TARTRATO [Suspect]
     Active Substance: VINORELBINE TARTRATE
     Route: 048
     Dates: start: 20160502
  4. CAPECITABINA [Suspect]
     Active Substance: CAPECITABINE
     Dates: start: 20160502
  5. VINORELBINA TARTRATO [Suspect]
     Active Substance: VINORELBINE TARTRATE
     Indication: METAPLASTIC BREAST CARCINOMA
     Dosage: 40 MG/DIE
     Route: 048
     Dates: start: 20130709, end: 20160128
  6. VINORELBINA TARTRATO [Suspect]
     Active Substance: VINORELBINE TARTRATE
     Route: 048
     Dates: start: 20160129, end: 20160501

REACTIONS (1)
  - Diverticulitis [Unknown]

NARRATIVE: CASE EVENT DATE: 201605
